FAERS Safety Report 6551776-9 (Version None)
Quarter: 2010Q1

REPORT INFORMATION
  Report Type: 
  Country: None (occurrence: None)
  Receive Date: 20100126
  Receipt Date: 20100113
  Transmission Date: 20100710
  Serious: Yes (Other)
  Sender: FDA-Public Use
  Company Number: DE-VALEANT-2009VX002076

PATIENT
  Sex: Female

DRUGS (1)
  1. EFUDIX [Suspect]
     Route: 065

REACTIONS (1)
  - ANGINA PECTORIS [None]
